FAERS Safety Report 5210322-2 (Version None)
Quarter: 2007Q1

REPORT INFORMATION
  Report Type: 
  Country: None (occurrence: None)
  Receive Date: 20070111
  Receipt Date: 20061219
  Transmission Date: 20070707
  Serious: Yes (Hospitalization)
  Sender: FDA-Public Use
  Company Number: GB-GUERBET-20060010

PATIENT
  Age: 38 Year
  Sex: Male
  Weight: 77 kg

DRUGS (3)
  1. DOTAREM:  06GD0308 / MEGLUMINE GADOTERATE [Suspect]
     Indication: ARTERIOGRAM CAROTID
     Dosage: DOSAGE:, ML MILLILITRE, UNSPECIFIED INTERVAL
     Route: 040
     Dates: start: 20061122, end: 20061122
  2. WARFARIN SODIUM [Concomitant]
  3. SIMVASTATIN [Concomitant]

REACTIONS (7)
  - DEPRESSED LEVEL OF CONSCIOUSNESS [None]
  - INJECTION SITE PAIN [None]
  - INJECTION SITE REACTION [None]
  - PARAESTHESIA [None]
  - SNEEZING [None]
  - SPEECH DISORDER [None]
  - THROAT TIGHTNESS [None]
